FAERS Safety Report 10629285 (Version 1)
Quarter: 2014Q4

REPORT INFORMATION
  Report Type: Spontaneous
  Country: US (occurrence: US)
  Receive Date: 20141205
  Receipt Date: 20141205
  Transmission Date: 20150529
  Serious: No
  Sender: FDA-Public Use
  Company Number: US-BRISTOL-MYERS SQUIBB COMPANY-21337258

PATIENT
  Age: 16 Year
  Sex: Male
  Weight: 109.75 kg

DRUGS (1)
  1. ABILIFY [Suspect]
     Active Substance: ARIPIPRAZOLE
     Indication: BIPOLAR DISORDER
     Dosage: DOSE INCREASED TO 10 MG ON OCTOBER 2012
     Dates: start: 201204, end: 201310

REACTIONS (2)
  - Weight increased [Unknown]
  - Gynaecomastia [Unknown]
